FAERS Safety Report 7203949-X (Version None)
Quarter: 2010Q4

REPORT INFORMATION
  Report Type: 
  Country: None (occurrence: None)
  Receive Date: 20101230
  Receipt Date: 20101222
  Transmission Date: 20110411
  Serious: No
  Sender: FDA-Public Use
  Company Number: US-PFIZER INC-2010177577

PATIENT
  Age: 73 Year
  Sex: Male
  Weight: 99.79 kg

DRUGS (2)
  1. VIAGRA [Suspect]
     Indication: ERECTILE DYSFUNCTION
     Dosage: 100 MG, AS NEEDED
     Dates: start: 20101101
  2. DOXAZOSIN [Concomitant]
     Indication: PROSTATE CANCER
     Dosage: 2 MG, UNK

REACTIONS (1)
  - DRUG INEFFECTIVE [None]
